FAERS Safety Report 9630355 (Version 1)
Quarter: 2013Q4

REPORT INFORMATION
  Report Type: Spontaneous
  Country: US (occurrence: US)
  Receive Date: 20131018
  Receipt Date: 20131018
  Transmission Date: 20140711
  Serious: Yes (Other)
  Sender: FDA-Public Use
  Company Number: US-AMGEN-USASP2013072026

PATIENT
  Age: 54 Year
  Sex: Female

DRUGS (3)
  1. PROLIA [Suspect]
     Indication: OSTEOPOROSIS POSTMENOPAUSAL
     Dosage: UNK UNK, Q6MO
     Route: 065
     Dates: start: 20130326
  2. EFFEXOR [Concomitant]
  3. MULTIVITAMIN                       /00097801/ [Concomitant]

REACTIONS (4)
  - Labyrinthitis [Unknown]
  - Activities of daily living impaired [Unknown]
  - Rash maculo-papular [Unknown]
  - Migraine [Unknown]
